FAERS Safety Report 8997819 (Version 5)
Quarter: 2014Q2

REPORT INFORMATION
  Report Type: Report from Study
  Country: US (occurrence: US)
  Receive Date: 20130104
  Receipt Date: 20140421
  Transmission Date: 20141212
  Serious: Yes (Hospitalization)
  Sender: FDA-Public Use
  Company Number: US-GLAXOSMITHKLINE-A0981843A

PATIENT
  Sex: Female

DRUGS (5)
  1. INFLUENZA VACCINE UNSPECIFIED 2012-13 SEASON [Suspect]
     Indication: PROPHYLAXIS
     Route: 065
     Dates: start: 201211, end: 201211
  2. ADVAIR [Suspect]
     Indication: CHRONIC OBSTRUCTIVE PULMONARY DISEASE
     Route: 055
  3. PNEUMOCOCCAL VACCINES (NON-GSK) [Suspect]
     Indication: PROPHYLAXIS
     Route: 065
     Dates: start: 2010, end: 2010
  4. ALBUTEROL [Suspect]
     Indication: CHRONIC OBSTRUCTIVE PULMONARY DISEASE
     Route: 065
  5. CONCURRENT MEDICATIONS [Suspect]

REACTIONS (10)
  - Pneumonia [Recovered/Resolved]
  - Gastrointestinal disorder [Unknown]
  - Dyspepsia [Unknown]
  - Urinary tract infection [Unknown]
  - Muscle spasms [Unknown]
  - Change of bowel habit [Unknown]
  - Adverse event [Unknown]
  - Candida infection [Unknown]
  - Chronic obstructive pulmonary disease [Unknown]
  - Sinus disorder [Unknown]
